FAERS Safety Report 24605979 (Version 2)
Quarter: 2024Q4

REPORT INFORMATION
  Report Type: Report from Study
  Country: US (occurrence: US)
  Receive Date: 20241111
  Receipt Date: 20241118
  Transmission Date: 20250115
  Serious: Yes (Hospitalization, Other)
  Sender: ABBVIE
  Company Number: US-ABBVIE-5981522

PATIENT
  Age: 44 Year
  Sex: Female
  Weight: 54.431 kg

DRUGS (2)
  1. HUMIRA [Suspect]
     Active Substance: ADALIMUMAB
     Indication: Rheumatoid arthritis
     Dosage: DRUG DISCONTINUED IN AUG 2024
     Route: 058
     Dates: start: 20240808
  2. HUMIRA [Suspect]
     Active Substance: ADALIMUMAB
     Route: 058
     Dates: start: 2008, end: 20230809

REACTIONS (19)
  - Vitreous floaters [Not Recovered/Not Resolved]
  - Ocular hyperaemia [Not Recovered/Not Resolved]
  - Amylase increased [Unknown]
  - Rheumatoid arthritis [Unknown]
  - Dry eye [Not Recovered/Not Resolved]
  - COVID-19 [Recovering/Resolving]
  - Pancreatitis chronic [Not Recovered/Not Resolved]
  - Hordeolum [Recovering/Resolving]
  - Ocular hyperaemia [Recovered/Resolved]
  - Cartilage injury [Not Recovered/Not Resolved]
  - Lipids abnormal [Unknown]
  - Meniscus injury [Not Recovered/Not Resolved]
  - Gallbladder disorder [Recovered/Resolved]
  - Pancreatic disorder [Not Recovered/Not Resolved]
  - Lipase increased [Unknown]
  - Blood cholesterol increased [Not Recovered/Not Resolved]
  - Vasospasm [Not Recovered/Not Resolved]
  - Systemic lupus erythematosus [Not Recovered/Not Resolved]
  - Pain [Not Recovered/Not Resolved]

NARRATIVE: CASE EVENT DATE: 20080101
